FAERS Safety Report 9738803 (Version 1)
Quarter: 2013Q4

REPORT INFORMATION
  Report Type: Spontaneous
  Country: US (occurrence: US)
  Receive Date: 20131209
  Receipt Date: 20131209
  Transmission Date: 20140711
  Serious: No
  Sender: FDA-Public Use
  Company Number: US-PFIZER INC-2013348728

PATIENT
  Age: 29 Year
  Sex: Female
  Weight: 68.03 kg

DRUGS (2)
  1. ADVIL [Suspect]
     Indication: HEADACHE
     Dosage: UNK, 2X/DAY
  2. ADVIL [Suspect]
     Indication: BACK PAIN

REACTIONS (2)
  - Oral discomfort [Unknown]
  - Hypoaesthesia oral [Unknown]
